FAERS Safety Report 7249718-6 (Version None)
Quarter: 2011Q1

REPORT INFORMATION
  Report Type: 
  Country: None (occurrence: None)
  Receive Date: 20110128
  Receipt Date: 20110119
  Transmission Date: 20110831
  Serious: Yes (Other)
  Sender: FDA-Public Use
  Company Number: US-JNJFOC-20101100303

PATIENT
  Sex: Female
  Weight: 78.02 kg

DRUGS (16)
  1. INFLIXIMAB, RECOMBINANT [Suspect]
     Indication: COLITIS ULCERATIVE
     Route: 042
  2. PREDNISONE [Concomitant]
  3. ADDERALL 10 [Concomitant]
     Route: 048
  4. TYLENOL W/ CODEINE NO. 3 [Concomitant]
     Dosage: 1 TABLET EVERY 4 HOUR AS NEEDED
     Route: 048
  5. WELLBUTRIN [Concomitant]
  6. CYANOCOBALAMIN [Concomitant]
     Route: 030
  7. PERCOCET [Concomitant]
     Dosage: 1 TAB EVERY 4 HOURS AS NEEDED FOR PAIN
  8. INFLIXIMAB, RECOMBINANT [Suspect]
     Route: 042
  9. ASACOL [Concomitant]
  10. ZANTAC [Concomitant]
  11. FERROUS SULFATE TAB [Concomitant]
     Route: 048
  12. METRONIDAZOLE [Concomitant]
     Dosage: APPLY TOPICALLY THINLY DAILY.
     Route: 061
  13. ACIPHEX [Concomitant]
  14. MULTI-VITAMINS [Concomitant]
  15. INFLIXIMAB, RECOMBINANT [Suspect]
     Route: 042
  16. VALTREX [Concomitant]
     Route: 048

REACTIONS (16)
  - HYPERTENSION [None]
  - FLUSHING [None]
  - NAUSEA [None]
  - HEART RATE INCREASED [None]
  - PALLOR [None]
  - ANXIETY [None]
  - ROSACEA [None]
  - PLANTAR FASCIITIS [None]
  - FATIGUE [None]
  - DRUG INEFFECTIVE [None]
  - HEADACHE [None]
  - WEIGHT INCREASED [None]
  - PYODERMA GANGRENOSUM [None]
  - ERYTHEMA NODOSUM [None]
  - ATTENTION DEFICIT/HYPERACTIVITY DISORDER [None]
  - COLITIS ULCERATIVE [None]
